FAERS Safety Report 8390419-9 (Version None)
Quarter: 2012Q2

REPORT INFORMATION
  Report Type: 
  Country: None (occurrence: None)
  Receive Date: 20120529
  Receipt Date: 20120518
  Transmission Date: 20120825
  Serious: Yes (Other)
  Sender: FDA-Public Use
  Company Number: PT-JNJFOC-20120517465

PATIENT
  Age: 37 Year
  Sex: Male

DRUGS (3)
  1. DARUNAVIR HYDRATE [Suspect]
     Indication: HIV INFECTION
     Route: 065
     Dates: start: 20100401
  2. ABACAVIR [Concomitant]
     Indication: HIV INFECTION
     Route: 065
  3. LAMIVUDINE [Concomitant]
     Indication: HIV INFECTION
     Route: 065

REACTIONS (3)
  - BLOOD BILIRUBIN INCREASED [None]
  - CELL DEATH [None]
  - CHOLESTASIS [None]
